FAERS Safety Report 7940896-X (Version None)
Quarter: 2011Q4

REPORT INFORMATION
  Report Type: 
  Country: None (occurrence: None)
  Receive Date: 20111114
  Receipt Date: 20110729
  Transmission Date: 20120403
  Serious: Yes (Hospitalization)
  Sender: FDA-Public Use
  Company Number: 1000022262

PATIENT
  Age: 53 Year
  Sex: Male

DRUGS (11)
  1. FLEXERIL (CYCLOBENAZAPRINE) (CYCLOBENAZAPRINE) [Concomitant]
  2. LOTENSIN (BENAZEPRIL) (BENAZEPRIL) [Concomitant]
  3. OXYCODONE (OXYCODONE) (5 MILLIGRAM) (OXYCODONE) [Concomitant]
  4. FENTANYL [Concomitant]
  5. PROMETHAZINE (PROMETHAZINE) (PROMETHAZINE) [Concomitant]
  6. METFORMIN HCL [Concomitant]
  7. NIASPAN (NICOTINIC ACID) (NICOTINIC ACID) [Concomitant]
  8. HUMALOG [Concomitant]
  9. SAVELLA [Suspect]
     Indication: FIBROMYALGIA
     Dosage: 12.5 MG (12.5 MG),ORAL ; 12.5 MG BID (12.5 MG,2 IN 1 D),ORAL
     Route: 048
     Dates: start: 20110714, end: 20110714
  10. SAVELLA [Suspect]
     Indication: FIBROMYALGIA
     Dosage: 12.5 MG (12.5 MG),ORAL ; 12.5 MG BID (12.5 MG,2 IN 1 D),ORAL
     Route: 048
     Dates: start: 20110715, end: 20110716
  11. LYRICA [Concomitant]

REACTIONS (1)
  - SEROTONIN SYNDROME [None]
